FAERS Safety Report 10305742 (Version 1)
Quarter: 2014Q3

REPORT INFORMATION
  Report Type: Spontaneous
  Country: US (occurrence: None)
  Receive Date: 20140711
  Receipt Date: 20140711
  Transmission Date: 20150326
  Serious: Yes (Life-Threatening)
  Sender: FDA-Public Use
  Company Number: None

PATIENT
  Age: 66 Year
  Sex: Female
  Weight: 58.06 kg

DRUGS (4)
  1. BIOTIN [Concomitant]
     Active Substance: BIOTIN
  2. PROLIA [Suspect]
     Active Substance: DENOSUMAB
     Indication: OSTEOPOROSIS
     Dosage: 60 MG, 60 MG/ML SUB Q-SYRINGE, 2X PER YEAR, INJECTION
     Dates: start: 20130517
  3. CALCIUM [Concomitant]
     Active Substance: CALCIUM
  4. VITAMIN D [Concomitant]
     Active Substance: CHOLECALCIFEROL

REACTIONS (10)
  - Headache [None]
  - Inflammation [None]
  - Erythema [None]
  - Blister [None]
  - Ulcer [None]
  - Pain [None]
  - Wound [None]
  - Skin disorder [None]
  - Alopecia [None]
  - Anxiety disorder [None]

NARRATIVE: CASE EVENT DATE: 20130517
